FAERS Safety Report 23709776 (Version 1)
Quarter: 2024Q2

REPORT INFORMATION
  Report Type: Report from Study
  Country: BE (occurrence: BE)
  Receive Date: 20240405
  Receipt Date: 20240405
  Transmission Date: 20240716
  Serious: Yes (Hospitalization)
  Sender: FDA-Public Use
  Company Number: BE-ABBVIE-5706347

PATIENT
  Age: 73 Year
  Sex: Male
  Weight: 94 kg

DRUGS (11)
  1. CARBIDOPA\LEVODOPA [Suspect]
     Active Substance: CARBIDOPA\LEVODOPA
     Indication: Parkinson^s disease
     Dosage: MD: 10.0 ML + 3.0 ML, CD: 3.6 ML/H, ED: 2.5 ML, CND: 1.6 ML/H REMAINS AT 24 HOURS
     Route: 050
     Dates: start: 20231018, end: 20240311
  2. CARBIDOPA\LEVODOPA [Suspect]
     Active Substance: CARBIDOPA\LEVODOPA
     Dosage: MD: 7.0 ML + 3.0 ML, CD: 3.8 ML/H, ED: 2.5 ML, CND: 1.6 ML/H REMAINS AT 24 HOURS
     Route: 050
     Dates: start: 20240311
  3. CARBIDOPA\LEVODOPA [Suspect]
     Active Substance: CARBIDOPA\LEVODOPA
     Route: 050
     Dates: start: 20210908
  4. BENSERAZIDE\LEVODOPA [Concomitant]
     Active Substance: BENSERAZIDE\LEVODOPA
     Indication: Product used for unknown indication
  5. BENSERAZIDE\LEVODOPA [Concomitant]
     Active Substance: BENSERAZIDE\LEVODOPA
     Indication: Product used for unknown indication
     Dosage: DISPERSIBLE?FREQUENCY TEXT: IF OFF UP TO 3 TIMES A DAY?FREQUENCY TEXT: AT 7 AM
  6. XADAGO [Concomitant]
     Active Substance: SAFINAMIDE MESYLATE
     Indication: Product used for unknown indication
     Dosage: AT 12 PM
  7. GABAPENTIN [Concomitant]
     Active Substance: GABAPENTIN
     Indication: Product used for unknown indication
     Dosage: FREQUENCY TEXT: 2 X UNKNOWN
  8. Pantomed [Concomitant]
     Indication: Product used for unknown indication
     Dosage: FORM STRENGTH: 20MG
  9. STALEVO [Concomitant]
     Active Substance: CARBIDOPA\ENTACAPONE\LEVODOPA
     Indication: Product used for unknown indication
     Dosage: FREQUENCY TEXT: AT 12 PM, 8 PM AND 10 PM
  10. STALEVO [Concomitant]
     Active Substance: CARBIDOPA\ENTACAPONE\LEVODOPA
     Indication: Product used for unknown indication
     Dosage: FREQUENCY TEXT: AT 12 PM
  11. RIVOTRIL [Concomitant]
     Active Substance: CLONAZEPAM
     Indication: Product used for unknown indication

REACTIONS (1)
  - General physical health deterioration [Unknown]

NARRATIVE: CASE EVENT DATE: 20240301
